FAERS Safety Report 11080825 (Version 1)
Quarter: 2015Q2

REPORT INFORMATION
  Report Type: Spontaneous
  Country: US (occurrence: None)
  Receive Date: 20150430
  Receipt Date: 20150430
  Transmission Date: 20150821
  Serious: Yes (Other)
  Sender: FDA-Public Use
  Company Number: None

PATIENT
  Age: 23 Year
  Sex: Female

DRUGS (1)
  1. TROKENDI XR [Suspect]
     Active Substance: TOPIRAMATE
     Indication: HEADACHE
     Dosage: TROKENDI XR 100MG?QD?ORAL
     Route: 048
     Dates: start: 20150416, end: 20150426

REACTIONS (1)
  - Angle closure glaucoma [None]

NARRATIVE: CASE EVENT DATE: 20150427
